FAERS Safety Report 9746345 (Version 1)
Quarter: 2013Q4

REPORT INFORMATION
  Report Type: Spontaneous
  Country: JP (occurrence: None)
  Receive Date: 20131205
  Receipt Date: 20131205
  Transmission Date: 20140711
  Serious: Yes (Hospitalization, Other)
  Sender: FDA-Public Use
  Company Number: 2013/212

PATIENT
  Age: 24 Month
  Sex: Female

DRUGS (1)
  1. VALPROIC ACID [Suspect]
     Indication: EPILEPSY

REACTIONS (3)
  - Status epilepticus [None]
  - Automatism [None]
  - Cerebral atrophy [None]
